FAERS Safety Report 7465712-4 (Version None)
Quarter: 2011Q2

REPORT INFORMATION
  Report Type: 
  Country: None (occurrence: None)
  Receive Date: 20110509
  Receipt Date: 20110503
  Transmission Date: 20111010
  Serious: Yes (Death, Hospitalization)
  Sender: FDA-Public Use
  Company Number: B0715854A

PATIENT
  Age: 70 Year
  Sex: Female

DRUGS (4)
  1. ARIXTRA [Suspect]
     Dosage: 2.5MG PER DAY
     Route: 058
     Dates: start: 20110401, end: 20110409
  2. OMEPRAZOLE [Concomitant]
  3. PERFALGAN [Concomitant]
  4. ANTIBIOTIC [Concomitant]
     Indication: PROPHYLAXIS

REACTIONS (1)
  - PULMONARY EMBOLISM [None]
